FAERS Safety Report 8967741 (Version 1)
Quarter: 2012Q4

REPORT INFORMATION
  Report Type: Spontaneous
  Country: US (occurrence: None)
  Receive Date: 20121213
  Receipt Date: 20121213
  Transmission Date: 20130627
  Serious: Yes (Hospitalization)
  Sender: FDA-Public Use
  Company Number: None

PATIENT
  Age: 35 Year
  Sex: Male
  Weight: 116.8 kg

DRUGS (1)
  1. PROPOFOL [Suspect]
     Dates: start: 20120716, end: 20120716

REACTIONS (17)
  - Pain in jaw [None]
  - Bone swelling [None]
  - Pharyngeal oedema [None]
  - Ocular hyperaemia [None]
  - Abdominal pain [None]
  - Face oedema [None]
  - Parotitis [None]
  - Facial pain [None]
  - Eye irritation [None]
  - Procedural pain [None]
  - Scrotal pain [None]
  - Headache [None]
  - Eye pain [None]
  - Photophobia [None]
  - Oesophageal disorder [None]
  - Dyspnoea [None]
  - Drug hypersensitivity [None]
